FAERS Safety Report 4826000-5 (Version None)
Quarter: 2005Q4

REPORT INFORMATION
  Report Type: 
  Country: None (occurrence: None)
  Receive Date: 20051111
  Receipt Date: 20050930
  Transmission Date: 20060501
  Serious: Yes (Hospitalization, Disabling)
  Sender: FDA-Public Use
  Company Number: US-MERCK-0510USA01925

PATIENT
  Age: 66 Year
  Sex: Female
  Weight: 75 kg

DRUGS (4)
  1. VIOXX [Suspect]
     Indication: ARTHRITIS
     Route: 048
     Dates: start: 20011201, end: 20041009
  2. ALEVE [Concomitant]
     Route: 065
  3. TYLENOL ARTHRITIS EXTENDED RELIEF [Concomitant]
     Route: 065
  4. VIOXX [Suspect]
     Route: 048
     Dates: start: 20011201, end: 20041009

REACTIONS (4)
  - CEREBROVASCULAR ACCIDENT [None]
  - HAEMORRHAGE INTRACRANIAL [None]
  - SCAR [None]
  - SINUS DISORDER [None]
